FAERS Safety Report 6259361-3 (Version None)
Quarter: 2009Q3

REPORT INFORMATION
  Report Type: 
  Country: None (occurrence: None)
  Receive Date: 20090706
  Receipt Date: 20090624
  Transmission Date: 20100115
  Serious: Yes (Death)
  Sender: FDA-Public Use
  Company Number: 20096307

PATIENT
  Sex: Male

DRUGS (1)
  1. LIORESAL [Suspect]
     Indication: MUSCLE SPASTICITY
     Dosage: 979.4 MCG, DAILY, INTRATHECAL
     Route: 037

REACTIONS (8)
  - ABDOMINAL DISTENSION [None]
  - ABDOMINAL PAIN [None]
  - CARDIO-RESPIRATORY ARREST [None]
  - GASTRIC PERFORATION [None]
  - PANCREATITIS [None]
  - PERITONITIS [None]
  - PNEUMOPERITONEUM [None]
  - SUDDEN DEATH [None]
